FAERS Safety Report 13826426 (Version 1)
Quarter: 2017Q3

REPORT INFORMATION
  Report Type: Spontaneous
  Country: US (occurrence: US)
  Receive Date: 20170802
  Receipt Date: 20170802
  Transmission Date: 20171127
  Serious: Yes (Other)
  Sender: FDA-Public Use
  Company Number: US-ALLERGAN-1732211US

PATIENT
  Age: 62 Year
  Sex: Male

DRUGS (9)
  1. LASIX [Concomitant]
     Active Substance: FUROSEMIDE
     Indication: PRODUCT USED FOR UNKNOWN INDICATION
     Route: 065
  2. DOXYCYCLINE. [Concomitant]
     Active Substance: DOXYCYCLINE
     Indication: PRODUCT USED FOR UNKNOWN INDICATION
     Route: 065
  3. ACIDOPHILUS [Concomitant]
     Active Substance: LACTOBACILLUS ACIDOPHILUS
     Indication: PRODUCT USED FOR UNKNOWN INDICATION
     Route: 065
  4. DALVANCE [Suspect]
     Active Substance: DALBAVANCIN
     Indication: CELLULITIS
     Dosage: 1500 MG, SINGLE
     Route: 042
     Dates: start: 20170728, end: 20170728
  5. ALEVE [Concomitant]
     Active Substance: NAPROXEN SODIUM
     Indication: PRODUCT USED FOR UNKNOWN INDICATION
     Route: 065
  6. ULTRAN [Concomitant]
     Active Substance: PHENAGLYCODOL
     Indication: PRODUCT USED FOR UNKNOWN INDICATION
     Route: 065
  7. CAPADEX [Concomitant]
     Indication: PRODUCT USED FOR UNKNOWN INDICATION
     Route: 065
  8. FLOMAX [Concomitant]
     Active Substance: TAMSULOSIN HYDROCHLORIDE
     Indication: PRODUCT USED FOR UNKNOWN INDICATION
     Route: 065
  9. BACTROBAN [Concomitant]
     Active Substance: MUPIROCIN\MUPIROCIN CALCIUM
     Indication: PRODUCT USED FOR UNKNOWN INDICATION
     Route: 061

REACTIONS (8)
  - Hyperventilation [Recovered/Resolved]
  - Blood pressure decreased [Recovered/Resolved]
  - Dyspnoea [Recovered/Resolved]
  - Breath holding [Recovered/Resolved]
  - Bone pain [Recovered/Resolved]
  - Oxygen saturation decreased [Recovered/Resolved]
  - Drug hypersensitivity [Not Recovered/Not Resolved]
  - Musculoskeletal discomfort [Recovered/Resolved]

NARRATIVE: CASE EVENT DATE: 20170728
